FAERS Safety Report 7000011-6 (Version None)
Quarter: 2010Q3

REPORT INFORMATION
  Report Type: 
  Country: None (occurrence: None)
  Receive Date: 20100920
  Receipt Date: 20100111
  Transmission Date: 20110219
  Serious: Yes (Hospitalization)
  Sender: FDA-Public Use
  Company Number: US-ASTRAZENECA-2009SE17813

PATIENT
  Age: 529 Month
  Sex: Male
  Weight: 108.9 kg

DRUGS (5)
  1. SEROQUEL [Suspect]
     Indication: DEPRESSION
     Route: 048
     Dates: start: 20070101, end: 20080101
  2. GEODON [Concomitant]
  3. ZYPREXA [Concomitant]
     Dates: start: 20071101
  4. WELLBUTRIN [Concomitant]
     Dates: start: 20070101, end: 20080101
  5. REMERON [Concomitant]
     Dates: start: 20070101, end: 20080101

REACTIONS (1)
  - TYPE 2 DIABETES MELLITUS [None]
